FAERS Safety Report 10621530 (Version 1)
Quarter: 2014Q4

REPORT INFORMATION
  Report Type: Spontaneous
  Country: US (occurrence: None)
  Receive Date: 20141121
  Receipt Date: 20141121
  Transmission Date: 20150529
  Serious: Yes (Hospitalization)
  Sender: FDA-Public Use
  Company Number: A-NJ2014-98756

PATIENT
  Age: 52 Year
  Sex: Female

DRUGS (2)
  1. VENTAVIS [Suspect]
     Active Substance: ILOPROST
     Indication: PULMONARY ARTERIAL HYPERTENSION
     Dosage: 5 UNK, 6-9X/D, RESPIRATORY
     Route: 055
     Dates: start: 20131118
  2. ADCIRCTA (TADALAFIL) [Concomitant]

REACTIONS (2)
  - Fluid retention [None]
  - Weight increased [None]

NARRATIVE: CASE EVENT DATE: 20140505
